FAERS Safety Report 4446201-8 (Version None)
Quarter: 2004Q3

REPORT INFORMATION
  Report Type: 
  Country: None (occurrence: None)
  Receive Date: 20040903
  Receipt Date: 20040902
  Transmission Date: 20050211
  Serious: Yes (Hospitalization)
  Sender: FDA-Public Use
  Company Number: 2004-UK-00706UK

PATIENT
  Age: 65 Year

DRUGS (6)
  1. COMBIVENT [Suspect]
     Indication: EMPHYSEMA
     Dosage: SEE IMAGE
     Route: 055
  2. HUMAN MIXTARI (HUMAN MIXTARI (AMF) [Concomitant]
  3. ASPIRIN (ACETYLSALICYLIC ACID) (TAM) [Concomitant]
  4. HENDROFLUAZIDE (HENDROFLMETHIAZIDE) (TA) [Concomitant]
  5. RAMIPRIL [Concomitant]
  6. PHYLLOCONTIN (AMINOPHYLLINE) [Concomitant]

REACTIONS (1)
  - CEREBROVASCULAR ACCIDENT [None]
